FAERS Safety Report 9696365 (Version 3)
Quarter: 2014Q1

REPORT INFORMATION
  Report Type: Spontaneous
  Country: US (occurrence: US)
  Receive Date: 20131119
  Receipt Date: 20140317
  Transmission Date: 20141002
  Serious: Yes (Other)
  Sender: FDA-Public Use
  Company Number: US-ELI_LILLY_AND_COMPANY-US201311003082

PATIENT
  Age: 7 Year
  Sex: Male
  Weight: 21.7 kg

DRUGS (7)
  1. ADCIRCA [Suspect]
     Indication: PULMONARY HYPERTENSION
     Dosage: 20 MG, QD
     Route: 048
     Dates: start: 20130420
  2. TYVASO [Concomitant]
  3. ORAPRED [Concomitant]
  4. PROGRAF [Concomitant]
  5. ASPIRIN [Concomitant]
  6. BACTRIM [Concomitant]
  7. VALCYTE [Concomitant]

REACTIONS (2)
  - Blindness transient [Recovered/Resolved]
  - Astigmatism [Recovered/Resolved]
